FAERS Safety Report 20741171 (Version 1)
Quarter: 2022Q2

REPORT INFORMATION
  Report Type: Spontaneous
  Country: JP (occurrence: JP)
  Receive Date: 20220422
  Receipt Date: 20220422
  Transmission Date: 20220721
  Serious: Yes (Death, Hospitalization, Other)
  Sender: FDA-Public Use
  Company Number: JP-ViiV Healthcare Limited-JP2022GSK066149

PATIENT
  Age: 29 Year
  Sex: Male

DRUGS (17)
  1. DOLUTEGRAVIR [Suspect]
     Active Substance: DOLUTEGRAVIR
     Indication: HIV infection
     Dosage: UNK
     Dates: start: 201509
  2. DOLUTEGRAVIR [Suspect]
     Active Substance: DOLUTEGRAVIR
     Indication: Acquired immunodeficiency syndrome
     Dosage: UNK
     Route: 048
  3. LAMIVUDINE [Suspect]
     Active Substance: LAMIVUDINE
     Indication: HIV infection
     Dosage: UNK
     Dates: start: 201509, end: 2018
  4. LAMIVUDINE [Suspect]
     Active Substance: LAMIVUDINE
     Indication: Acquired immunodeficiency syndrome
  5. ABACAVIR [Suspect]
     Active Substance: ABACAVIR
     Indication: Acquired immunodeficiency syndrome
     Dosage: UNK
     Dates: start: 201509, end: 2018
  6. ABACAVIR [Suspect]
     Active Substance: ABACAVIR
     Indication: HIV infection
  7. TENOFOVIR DISOPROXIL FUMARATE [Suspect]
     Active Substance: TENOFOVIR DISOPROXIL FUMARATE
     Indication: Acquired immunodeficiency syndrome
     Dosage: UNK
     Route: 048
     Dates: start: 201807
  8. TENOFOVIR DISOPROXIL FUMARATE [Suspect]
     Active Substance: TENOFOVIR DISOPROXIL FUMARATE
     Indication: HIV infection
  9. AMIKACIN SULFATE [Suspect]
     Active Substance: AMIKACIN SULFATE
     Indication: Disseminated mycobacterium avium complex infection
     Dosage: 1000 MG
     Route: 042
     Dates: start: 201905
  10. LEVOFLOXACIN [Suspect]
     Active Substance: LEVOFLOXACIN
     Indication: Disseminated mycobacterium avium complex infection
     Dosage: 750 MG
     Dates: start: 201905
  11. LEVOFLOXACIN [Suspect]
     Active Substance: LEVOFLOXACIN
     Dosage: UNK
     Route: 042
  12. EMTRICITABINE [Suspect]
     Active Substance: EMTRICITABINE
     Indication: Acquired immunodeficiency syndrome
     Dosage: UNK
     Route: 048
     Dates: start: 201807
  13. EMTRICITABINE [Suspect]
     Active Substance: EMTRICITABINE
     Indication: HIV infection
  14. DARUNAVIR [Suspect]
     Active Substance: DARUNAVIR
     Indication: Acquired immunodeficiency syndrome
     Dosage: UNK
     Route: 048
     Dates: start: 201807
  15. DARUNAVIR [Suspect]
     Active Substance: DARUNAVIR
     Indication: HIV infection
  16. COBICISTAT [Suspect]
     Active Substance: COBICISTAT
     Indication: Acquired immunodeficiency syndrome
     Dosage: UNK
     Route: 048
     Dates: start: 201807
  17. COBICISTAT [Suspect]
     Active Substance: COBICISTAT
     Indication: HIV infection

REACTIONS (30)
  - Protein-losing gastroenteropathy [Fatal]
  - Disseminated mycobacterium avium complex infection [Unknown]
  - Virologic failure [Fatal]
  - Therapy non-responder [Fatal]
  - Sepsis [Fatal]
  - Pyrexia [Unknown]
  - Lymphadenopathy [Unknown]
  - Lymphadenopathy mediastinal [Unknown]
  - Deafness neurosensory [Unknown]
  - Hypoalbuminaemia [Unknown]
  - Vomiting [Unknown]
  - Viral load increased [Unknown]
  - Immune reconstitution inflammatory syndrome [Unknown]
  - Pain [Unknown]
  - Hypotension [Unknown]
  - CD4 lymphocytes decreased [Unknown]
  - Condition aggravated [Unknown]
  - Diarrhoea [Unknown]
  - Ileal ulcer [Unknown]
  - Cytomegalovirus colitis [Unknown]
  - Lymphangiectasia intestinal [Unknown]
  - Splenomegaly [Unknown]
  - Nodule [Unknown]
  - Lymphangiectasia [Unknown]
  - Viral mutation identified [Unknown]
  - Staphylococcal infection [Unknown]
  - Malabsorption [Unknown]
  - Drug level below therapeutic [Unknown]
  - Treatment noncompliance [Unknown]
  - Drug ineffective [Unknown]
